FAERS Safety Report 9590508 (Version 1)
Quarter: 2013Q4

REPORT INFORMATION
  Report Type: Spontaneous
  Country: US (occurrence: US)
  Receive Date: 20131003
  Receipt Date: 20131003
  Transmission Date: 20140711
  Serious: No
  Sender: FDA-Public Use
  Company Number: US-AMGEN-USASP2012077752

PATIENT
  Age: 49 Year
  Sex: Female
  Weight: 77.1 kg

DRUGS (4)
  1. ENBREL [Suspect]
     Indication: RHEUMATOID ARTHRITIS
     Dosage: 50 MG, QWK
     Route: 058
  2. ARAVA [Concomitant]
     Dosage: 10 MG, UNK
  3. LISINOPRIL [Concomitant]
     Dosage: 5 MG, UNK
  4. IBUPROFEN [Concomitant]
     Dosage: 200 MG, UNK

REACTIONS (2)
  - Oropharyngeal pain [Unknown]
  - Influenza like illness [Unknown]
